FAERS Safety Report 21397780 (Version 3)
Quarter: 2022Q4

REPORT INFORMATION
  Report Type: Spontaneous
  Country: JP (occurrence: JP)
  Receive Date: 20220930
  Receipt Date: 20221209
  Transmission Date: 20230113
  Serious: Yes (Life-Threatening, Hospitalization, Other)
  Sender: FDA-Public Use
  Company Number: JP-GLAXOSMITHKLINE-JP2022JPN138748

PATIENT

DRUGS (3)
  1. VALTREX [Suspect]
     Active Substance: VALACYCLOVIR HYDROCHLORIDE
     Indication: Herpes zoster
     Dosage: 1000 MG, BID
     Route: 048
     Dates: start: 2021
  2. VALTREX [Suspect]
     Active Substance: VALACYCLOVIR HYDROCHLORIDE
     Dosage: 1000 MG
     Route: 048
  3. AZELNIDIPINE\OLMESARTAN MEDOXOMIL [Concomitant]
     Active Substance: AZELNIDIPINE\OLMESARTAN MEDOXOMIL
     Indication: Hypertension
     Dosage: 1 DF/DAY
     Route: 048

REACTIONS (11)
  - Drug reaction with eosinophilia and systemic symptoms [Unknown]
  - Cytomegalovirus enterocolitis [Unknown]
  - Diarrhoea [Unknown]
  - Erythema [Unknown]
  - Rash [Recovered/Resolved]
  - Cutaneous symptom [Unknown]
  - Rash pruritic [Recovering/Resolving]
  - Pyrexia [Unknown]
  - Eosinophilia [Unknown]
  - Oral mucosal blistering [Unknown]
  - Incorrect product administration duration [Unknown]

NARRATIVE: CASE EVENT DATE: 20211004
